FAERS Safety Report 17976883 (Version 3)
Quarter: 2020Q3

REPORT INFORMATION
  Report Type: Spontaneous
  Country: US (occurrence: US)
  Receive Date: 20200702
  Receipt Date: 20200810
  Transmission Date: 20201103
  Serious: No
  Sender: FDA-Public Use
  Company Number: NVSC2020US187615

PATIENT
  Sex: Female

DRUGS (1)
  1. VOTRIENT [Suspect]
     Active Substance: PAZOPANIB HYDROCHLORIDE
     Indication: OVARIAN CANCER
     Dosage: 800 MG, QD
     Route: 048
     Dates: start: 20200529

REACTIONS (9)
  - Product use in unapproved indication [Unknown]
  - Nausea [Unknown]
  - Dizziness [Unknown]
  - Hypertension [Unknown]
  - Frequent bowel movements [Unknown]
  - Visual impairment [Unknown]
  - Headache [Unknown]
  - Abdominal discomfort [Unknown]
  - Ageusia [Unknown]
